FAERS Safety Report 9419851 (Version 1)
Quarter: 2013Q3

REPORT INFORMATION
  Report Type: Spontaneous
  Country: US (occurrence: None)
  Receive Date: 20130723
  Receipt Date: 20130723
  Transmission Date: 20140515
  Serious: Yes (Life-Threatening, Hospitalization)
  Sender: FDA-Public Use
  Company Number: None

PATIENT
  Age: 71 Year
  Sex: Female
  Weight: 77 kg

DRUGS (2)
  1. SOTALOL [Suspect]
     Indication: ARRHYTHMIA
     Dosage: 80 MG BID PO
     Dates: start: 20130714, end: 20130714
  2. AMIODARONE [Suspect]
     Indication: ARRHYTHMIA
     Dosage: 1 MG/MIM IV DRIP
     Dates: start: 20130713

REACTIONS (1)
  - Torsade de pointes [None]
